FAERS Safety Report 21092969 (Version 2)
Quarter: 2022Q3

REPORT INFORMATION
  Report Type: Spontaneous
  Country: US (occurrence: US)
  Receive Date: 20220718
  Receipt Date: 20220817
  Transmission Date: 20221027
  Serious: No
  Sender: FDA-Public Use
  Company Number: US-BAUSCH-BL-2022-017903

PATIENT
  Age: 75 Year
  Sex: Male
  Weight: 74.910 kg

DRUGS (1)
  1. LATANOPROST [Suspect]
     Active Substance: LATANOPROST
     Indication: Intraocular pressure increased
     Dosage: 1 GTT, QD, PATIENT USED A DROP OF THE PRODUCT IN EACH EYE
     Route: 047

REACTIONS (2)
  - Instillation site pain [Not Recovered/Not Resolved]
  - Product quality issue [Unknown]
